FAERS Safety Report 7504087-9 (Version None)
Quarter: 2011Q2

REPORT INFORMATION
  Report Type: 
  Country: None (occurrence: None)
  Receive Date: 20110525
  Receipt Date: 20110518
  Transmission Date: 20111010
  Serious: Yes (Hospitalization, Disabling, Other)
  Sender: FDA-Public Use
  Company Number: FR-ABBOTT-11P-056-0722538-00

PATIENT
  Sex: Female
  Weight: 120 kg

DRUGS (1)
  1. HUMIRA [Suspect]
     Indication: ANKYLOSING SPONDYLITIS
     Route: 058
     Dates: start: 20090101, end: 20100428

REACTIONS (4)
  - POST PROCEDURAL FISTULA [None]
  - DOUGLAS' ABSCESS [None]
  - ABSCESS [None]
  - INCISION SITE COMPLICATION [None]
